FAERS Safety Report 4890078-3 (Version None)
Quarter: 2005Q4

REPORT INFORMATION
  Report Type: 
  Country: None (occurrence: None)
  Receive Date: 20051220
  Receipt Date: 20051006
  Transmission Date: 20060501
  Serious: Yes (Other)
  Sender: FDA-Public Use
  Company Number: 420560

PATIENT
  Sex: Female

DRUGS (2)
  1. BONIVA [Suspect]
     Dosage: ORAL
     Route: 048
  2. VALIUM [Concomitant]

REACTIONS (3)
  - DIARRHOEA [None]
  - DIZZINESS [None]
  - FLUSHING [None]
